FAERS Safety Report 7407832-6 (Version None)
Quarter: 2011Q2

REPORT INFORMATION
  Report Type: 
  Country: None (occurrence: None)
  Receive Date: 20110412
  Receipt Date: 20110404
  Transmission Date: 20111010
  Serious: Yes (Hospitalization)
  Sender: FDA-Public Use
  Company Number: DE-ASTELLAS-2011EU000026

PATIENT
  Sex: Male

DRUGS (1)
  1. TACROLIMUS [Suspect]
     Indication: LIVER TRANSPLANT
     Dosage: 4.5 MG, UID/QD
     Route: 048
     Dates: start: 20081015

REACTIONS (2)
  - RETINAL DETACHMENT [None]
  - RETINAL VEIN OCCLUSION [None]
